FAERS Safety Report 9253867 (Version 1)
Quarter: 2013Q2

REPORT INFORMATION
  Report Type: Spontaneous
  Country: US (occurrence: None)
  Receive Date: 20130419
  Receipt Date: 20130419
  Transmission Date: 20140414
  Serious: Yes (Life-Threatening, Hospitalization, Other)
  Sender: FDA-Public Use
  Company Number: 2013AP004471

PATIENT
  Age: 14 Year
  Sex: Female

DRUGS (2)
  1. LAMOTRIGINE TABLETS 25MG [Suspect]
     Indication: BIPOLAR DISORDER
  2. BUPROPION HYDROCHLORIDE TABLETS [Suspect]
     Indication: BIPOLAR DISORDER

REACTIONS (12)
  - Drug reaction with eosinophilia and systemic symptoms [None]
  - Glossitis [None]
  - Pharyngitis [None]
  - Anaemia [None]
  - Pancreatitis [None]
  - Tubulointerstitial nephritis [None]
  - Thyroiditis [None]
  - Respiratory failure [None]
  - Cardiac arrest [None]
  - Torsade de pointes [None]
  - Fluid overload [None]
  - Renal injury [None]
